FAERS Safety Report 10896670 (Version 4)
Quarter: 2016Q4

REPORT INFORMATION
  Report Type: Spontaneous
  Country: US (occurrence: US)
  Receive Date: 20150309
  Receipt Date: 20161123
  Transmission Date: 20170206
  Serious: Yes (Death, Hospitalization)
  Sender: FDA-Public Use
  Company Number: US-JNJFOC-20150211271

PATIENT
  Age: 74 Year
  Sex: Male

DRUGS (1)
  1. IMBRUVICA [Suspect]
     Active Substance: IBRUTINIB
     Indication: MANTLE CELL LYMPHOMA
     Route: 048
     Dates: start: 20141227

REACTIONS (9)
  - Mass [Recovering/Resolving]
  - Staphylococcal sepsis [Not Recovered/Not Resolved]
  - Dysphagia [Recovered/Resolved]
  - Fungal sepsis [Not Recovered/Not Resolved]
  - Disease progression [Fatal]
  - Dyspnoea [Recovered/Resolved]
  - Sinusitis [Unknown]
  - Pneumonia [Unknown]
  - Nasal abscess [Recovering/Resolving]

NARRATIVE: CASE EVENT DATE: 201501
